FAERS Safety Report 7639810-6 (Version None)
Quarter: 2011Q3

REPORT INFORMATION
  Report Type: 
  Country: None (occurrence: None)
  Receive Date: 20110727
  Receipt Date: 20110722
  Transmission Date: 20111222
  Serious: Yes (Other)
  Sender: FDA-Public Use
  Company Number: US-PFIZER INC-2011154110

PATIENT
  Sex: Male
  Weight: 81.633 kg

DRUGS (3)
  1. FLONASE [Concomitant]
     Indication: SINUSITIS
     Dosage: UNK
     Dates: start: 20110113, end: 20110213
  2. CHANTIX [Suspect]
     Indication: SMOKING CESSATION THERAPY
     Dosage: 0.5 MG, 1X/DAY
     Route: 048
     Dates: start: 20110114, end: 20110101
  3. ZITHROMAX [Concomitant]
     Indication: SINUSITIS
     Dosage: UNK
     Dates: start: 20110113, end: 20110118

REACTIONS (7)
  - PALPITATIONS [None]
  - DECREASED ACTIVITY [None]
  - DYSPNOEA [None]
  - FEELING ABNORMAL [None]
  - HEADACHE [None]
  - HEART RATE ABNORMAL [None]
  - MIGRAINE [None]
